FAERS Safety Report 10437987 (Version 3)
Quarter: 2014Q4

REPORT INFORMATION
  Report Type: Report from Study
  Country: US (occurrence: US)
  Receive Date: 20140908
  Receipt Date: 20141024
  Transmission Date: 20150528
  Serious: Yes (Life-Threatening, Hospitalization)
  Sender: FDA-Public Use
  Company Number: US-009507513-1409USA003167

PATIENT
  Age: 39 Year
  Sex: Female
  Weight: 65 kg

DRUGS (6)
  1. IDARUBICIN [Suspect]
     Active Substance: IDARUBICIN
     Indication: ACUTE MYELOID LEUKAEMIA
     Dosage: 8 MG/M2/DAY IV OVER 15 MIN ON DAYS 4-5
     Route: 042
     Dates: start: 20140801, end: 20140802
  2. VORINOSTAT [Suspect]
     Active Substance: VORINOSTAT
     Indication: ACUTE MYELOID LEUKAEMIA
     Dosage: 500 MG, TID ON DAYS 1-3, CYCLE 5 (C=28 DAYS)
     Route: 048
     Dates: start: 20140729, end: 20140731
  3. CYTARABINE. [Suspect]
     Active Substance: CYTARABINE
     Indication: ACUTE MYELOID LEUKAEMIA
     Dosage: 750 MG/M2/DAY, CONTINUOUS IV INFUSION ON DAYS 4-6
     Route: 042
     Dates: start: 20140801, end: 20140803
  4. CYTARABINE. [Suspect]
     Active Substance: CYTARABINE
     Dosage: 1500 MG/M2/DAY ON DAYS 4-7, CYCLE 1
     Route: 042
     Dates: start: 20140125, end: 20140128
  5. VORINOSTAT [Suspect]
     Active Substance: VORINOSTAT
     Dosage: 500 MG, TID ON DAYS 1-3, CYCLE 1 (C=28 DAYS)
     Route: 048
     Dates: start: 20140122, end: 20140124
  6. IDARUBICIN [Suspect]
     Active Substance: IDARUBICIN
     Dosage: 12 MG/M2/DAY, IV OVER 15 MIN ON DAYS 4-6
     Route: 042
     Dates: start: 20140125, end: 20140127

REACTIONS (5)
  - Hypotension [Recovered/Resolved]
  - Abdominal pain [Recovered/Resolved]
  - Urinary tract infection [Recovered/Resolved]
  - Sepsis [Recovered/Resolved]
  - Febrile neutropenia [Recovered/Resolved]

NARRATIVE: CASE EVENT DATE: 20140811
